FAERS Safety Report 16078488 (Version 1)
Quarter: 2019Q1

REPORT INFORMATION
  Report Type: Spontaneous
  Country: US (occurrence: US)
  Receive Date: 20190315
  Receipt Date: 20190315
  Transmission Date: 20190418
  Serious: Yes (Death, Hospitalization)
  Sender: FDA-Public Use
  Company Number: US-ACTELION-A-CH2019-187334

PATIENT

DRUGS (2)
  1. OPSUMIT [Suspect]
     Active Substance: MACITENTAN
     Indication: PULMONARY ARTERIAL HYPERTENSION
     Route: 048
  2. RIOCIGUAT. [Suspect]
     Active Substance: RIOCIGUAT
     Indication: PULMONARY ARTERIAL HYPERTENSION
     Route: 048

REACTIONS (18)
  - Abdominal sepsis [Fatal]
  - Pneumonia bacterial [Fatal]
  - Acute respiratory distress syndrome [Fatal]
  - Fluid overload [Recovered/Resolved]
  - Nasal congestion [Recovered/Resolved]
  - Drug ineffective [Unknown]
  - Pulmonary arterial hypertension [Unknown]
  - Abdominal operation [Unknown]
  - Condition aggravated [Unknown]
  - Respiratory failure [Fatal]
  - Right ventricular failure [Recovered/Resolved]
  - Therapeutic response decreased [Unknown]
  - Pneumonia aspiration [Fatal]
  - Lung transplant [Unknown]
  - Headache [Recovered/Resolved]
  - Oedema peripheral [Recovered/Resolved]
  - Hypotension [Recovered/Resolved]
  - Walking distance test abnormal [Unknown]
